FAERS Safety Report 8584128-0 (Version None)
Quarter: 2012Q3

REPORT INFORMATION
  Report Type: 
  Country: None (occurrence: None)
  Receive Date: 20120810
  Receipt Date: 20120802
  Transmission Date: 20120928
  Serious: Yes (Other)
  Sender: FDA-Public Use
  Company Number: US-009507513-1208USA002386

PATIENT

DRUGS (6)
  1. ZETIA [Suspect]
     Indication: HYPERCHOLESTEROLAEMIA
     Dosage: 10 MG, QD
     Route: 048
     Dates: start: 20120602, end: 20120611
  2. LEVOTHYROXINE SODIUM [Concomitant]
  3. LORATADINE [Concomitant]
  4. VERAMYST [Concomitant]
  5. VITAMIN D [Concomitant]
  6. FLUTICASONE PROPIONATE [Concomitant]

REACTIONS (1)
  - HEPATIC ENZYME INCREASED [None]
